FAERS Safety Report 16894136 (Version 1)
Quarter: 2019Q4

REPORT INFORMATION
  Report Type: Spontaneous
  Country: GB (occurrence: GB)
  Receive Date: 20191008
  Receipt Date: 20191008
  Transmission Date: 20200122
  Serious: Yes (Other)
  Sender: FDA-Public Use
  Company Number: GB-MYLANLABS-2019M1092593

PATIENT
  Age: 71 Year

DRUGS (3)
  1. DENOSUMAB [Suspect]
     Active Substance: DENOSUMAB
     Indication: METASTASES TO BONE
     Dosage: UNK
     Dates: start: 20180302
  2. PALBOCICLIB [Suspect]
     Active Substance: PALBOCICLIB
     Indication: METASTASES TO BONE
     Dosage: UNK
     Dates: start: 20180302
  3. LETROZOLE. [Suspect]
     Active Substance: LETROZOLE
     Indication: METASTASES TO BONE
     Dosage: UNK
     Dates: start: 20180302

REACTIONS (7)
  - Arthralgia [Unknown]
  - Affect lability [Unknown]
  - Swelling [Unknown]
  - Muscle spasms [Unknown]
  - Peripheral swelling [Unknown]
  - Neutropenia [Unknown]
  - Contusion [Unknown]

NARRATIVE: CASE EVENT DATE: 20180309
